FAERS Safety Report 7624185-9 (Version None)
Quarter: 2011Q3

REPORT INFORMATION
  Report Type: 
  Country: None (occurrence: None)
  Receive Date: 20110720
  Receipt Date: 20110720
  Transmission Date: 20111222
  Serious: Yes (Other)
  Sender: FDA-Public Use
  Company Number: None

PATIENT
  Age: 49 Year
  Sex: Female
  Weight: 129.27 kg

DRUGS (1)
  1. NUCYNTA [Suspect]
     Indication: BREAKTHROUGH PAIN
     Dosage: 1 TABLET
     Route: 048
     Dates: start: 20110712, end: 20110714

REACTIONS (1)
  - URINARY HESITATION [None]
